FAERS Safety Report 13054852 (Version 2)
Quarter: 2016Q4

REPORT INFORMATION
  Report Type: Report from Study
  Country: None (occurrence: DE)
  Receive Date: 20161222
  Receipt Date: 20161228
  Transmission Date: 20170207
  Serious: Yes (Hospitalization)
  Sender: FDA-Public Use
  Company Number: DE-ABBVIE-16K-062-1812742-00

PATIENT
  Age: 49 Year
  Sex: Female

DRUGS (3)
  1. CANDESARTAN [Concomitant]
     Active Substance: CANDESARTAN
     Indication: PROPHYLAXIS
  2. HUMIRA [Suspect]
     Active Substance: ADALIMUMAB
     Indication: PSORIATIC ARTHROPATHY
     Route: 058
     Dates: start: 20151106
  3. CANDESARTAN [Concomitant]
     Active Substance: CANDESARTAN
     Indication: INTRAOCULAR PRESSURE INCREASED

REACTIONS (2)
  - Neuritis [Recovered/Resolved]
  - Stress [Unknown]

NARRATIVE: CASE EVENT DATE: 201611
